FAERS Safety Report 7643976-1 (Version None)
Quarter: 2011Q3

REPORT INFORMATION
  Report Type: 
  Country: None (occurrence: None)
  Receive Date: 20110729
  Receipt Date: 20101019
  Transmission Date: 20111222
  Serious: No
  Sender: FDA-Public Use
  Company Number: US-GLAXOSMITHKLINE-A0888122A

PATIENT
  Age: 86 Year
  Sex: Female

DRUGS (1)
  1. ZANTAC [Suspect]
     Indication: ABDOMINAL PAIN
     Route: 065

REACTIONS (1)
  - THERAPEUTIC RESPONSE DECREASED [None]
